FAERS Safety Report 5291990-6 (Version None)
Quarter: 2007Q2

REPORT INFORMATION
  Report Type: 
  Country: None (occurrence: None)
  Receive Date: 20070403
  Receipt Date: 20070321
  Transmission Date: 20071010
  Serious: Yes (Hospitalization)
  Sender: FDA-Public Use
  Company Number: 2007PV032077

PATIENT
  Age: 64 Year
  Sex: Female
  Weight: 106.5953 kg

DRUGS (10)
  1. BYETTA [Suspect]
     Indication: DIABETES MELLITUS NON-INSULIN-DEPENDENT
     Dosage: 5 MCG; BID; SC
     Route: 058
     Dates: start: 20061201
  2. GLYNASE [Concomitant]
  3. AMARYL [Concomitant]
  4. LANTUS [Concomitant]
  5. AVALIDE [Concomitant]
  6. MONOPRIL [Concomitant]
  7. METOPROLOL SUCCINATE EXTENDED RELEASE [Concomitant]
  8. VYTORIN [Concomitant]
  9. ASPIRIN [Concomitant]
  10. VITAMIN B6 [Concomitant]

REACTIONS (6)
  - DIZZINESS [None]
  - ELECTROCARDIOGRAM ABNORMAL [None]
  - FEELING JITTERY [None]
  - HEADACHE [None]
  - MALAISE [None]
  - TREMOR [None]
